FAERS Safety Report 9600888 (Version 1)
Quarter: 2013Q4

REPORT INFORMATION
  Report Type: Spontaneous
  Country: US (occurrence: US)
  Receive Date: 20131004
  Receipt Date: 20131004
  Transmission Date: 20140711
  Serious: No
  Sender: FDA-Public Use
  Company Number: US-AMGEN-USASP2013038724

PATIENT
  Age: 62 Year
  Sex: Female
  Weight: 89.34 kg

DRUGS (18)
  1. ENBREL [Suspect]
     Indication: PRODUCT USED FOR UNKNOWN INDICATION
     Dosage: 50 MG, QWK
     Route: 058
  2. PLAQUENIL                          /00072602/ [Concomitant]
     Dosage: 200 MG, UNK
  3. FOLIC ACID [Concomitant]
     Dosage: UNK
  4. DILAUDID [Concomitant]
     Dosage: 3 MG, UNK
  5. ASPIRIN [Concomitant]
     Dosage: 81 MG, UNK
  6. CENTRUM                            /07499601/ [Concomitant]
     Dosage: UNK
  7. VITAMIN B [Concomitant]
     Dosage: 50 UNK, UNK
  8. VITAMIN D                          /00107901/ [Concomitant]
     Dosage: 2000 UNIT, UNK
  9. NORVASC [Concomitant]
     Dosage: 5 MG, UNK
  10. LIPITOR [Concomitant]
     Dosage: 80 MG, UNK
  11. NEXIUM                             /01479302/ [Concomitant]
     Dosage: 40 MG, UNK
  12. TRAMADOL HCL [Concomitant]
     Dosage: 50 MG, UNK
  13. OXYCONTIN [Concomitant]
     Dosage: 80 MG, UNK, CR
  14. CYMBALTA [Concomitant]
     Dosage: 60 MG, UNK
  15. GABAPENTIN [Concomitant]
     Dosage: 800 MG, UNK
  16. METHOTREXATE [Concomitant]
     Dosage: 2.5 MG, UNK
  17. CALTRATE                           /07357001/ [Concomitant]
     Dosage: 600 UNK, UNK
  18. VOLTAREN                           /00372301/ [Concomitant]
     Dosage: 1 %, UNK

REACTIONS (2)
  - Fatigue [Unknown]
  - Injection site erythema [Unknown]
